FAERS Safety Report 6889805-5 (Version None)
Quarter: 2010Q3

REPORT INFORMATION
  Report Type: 
  Country: None (occurrence: None)
  Receive Date: 20100730
  Receipt Date: 20080506
  Transmission Date: 20110219
  Serious: Yes (Disabling)
  Sender: FDA-Public Use
  Company Number: US-PFIZER INC-2008035299

PATIENT
  Sex: Female

DRUGS (1)
  1. LIPITOR [Suspect]
     Dates: end: 20080101

REACTIONS (3)
  - MUSCLE SPASMS [None]
  - MUSCULAR WEAKNESS [None]
  - UNEVALUABLE EVENT [None]
